FAERS Safety Report 16197332 (Version 1)
Quarter: 2019Q2

REPORT INFORMATION
  Report Type: Spontaneous
  Country: US (occurrence: US)
  Receive Date: 20190413
  Receipt Date: 20190413
  Transmission Date: 20190711
  Serious: No
  Sender: FDA-Public Use
  Company Number: None

PATIENT
  Age: 55 Year
  Sex: Female
  Weight: 92.25 kg

DRUGS (3)
  1. PROPRANALOL 20 MG [Concomitant]
  2. TOPIRAMATE 75 MG [Concomitant]
  3. AIMOVIG [Suspect]
     Active Substance: ERENUMAB-AOOE
     Indication: MIGRAINE
     Dosage: ?          QUANTITY:2 INJECTION(S);OTHER FREQUENCY:MONTHLY;OTHER ROUTE:SUBCUTANEOUS AUTOINJECTOR?
     Dates: start: 20180826, end: 20190317

REACTIONS (6)
  - Pruritus [None]
  - Injection site reaction [None]
  - Tinnitus [None]
  - Urticaria [None]
  - Hot flush [None]
  - Swelling [None]

NARRATIVE: CASE EVENT DATE: 20190213
